FAERS Safety Report 7744995-7 (Version None)
Quarter: 2011Q3

REPORT INFORMATION
  Report Type: 
  Country: None (occurrence: None)
  Receive Date: 20110913
  Receipt Date: 20110831
  Transmission Date: 20111222
  Serious: No
  Sender: FDA-Public Use
  Company Number: US-BIOGENIDEC-2011BI033844

PATIENT
  Sex: Female

DRUGS (1)
  1. TYSABRI [Suspect]
     Indication: MULTIPLE SCLEROSIS
     Route: 042
     Dates: start: 20100203

REACTIONS (11)
  - TENDON RUPTURE [None]
  - ANAEMIA [None]
  - CRYING [None]
  - CONFUSIONAL STATE [None]
  - KNEE DEFORMITY [None]
  - RHINORRHOEA [None]
  - PAIN IN EXTREMITY [None]
  - LIGAMENT RUPTURE [None]
  - SINUSITIS [None]
  - ARTHRITIS INFECTIVE [None]
  - CYSTITIS [None]
